FAERS Safety Report 7013017-8 (Version None)
Quarter: 2010Q3

REPORT INFORMATION
  Report Type: 
  Country: None (occurrence: None)
  Receive Date: 20100924
  Receipt Date: 20100916
  Transmission Date: 20110219
  Serious: Yes (Other)
  Sender: FDA-Public Use
  Company Number: JP-PFIZER INC-2010117600

PATIENT
  Age: 61 Year
  Sex: Male

DRUGS (2)
  1. NORVASC [Suspect]
     Dosage: 2.5 MG DAILY
     Route: 048
     Dates: start: 20030101
  2. SOLANAX [Suspect]
     Route: 048

REACTIONS (1)
  - BRADYCARDIA [None]
